FAERS Safety Report 6653027-3 (Version None)
Quarter: 2010Q1

REPORT INFORMATION
  Report Type: 
  Country: None (occurrence: None)
  Receive Date: 20100326
  Receipt Date: 20100316
  Transmission Date: 20100710
  Serious: Yes (Other)
  Sender: FDA-Public Use
  Company Number: PHHY2010US17026

PATIENT
  Age: 74 Year
  Sex: Female
  Weight: 68.027 kg

DRUGS (1)
  1. VALTURNA [Suspect]
     Indication: HYPERTENSION
     Dosage: 300/320 MG, QD
     Route: 048
     Dates: start: 20100225, end: 20100226

REACTIONS (2)
  - CONFUSIONAL STATE [None]
  - DYSARTHRIA [None]
